FAERS Safety Report 7293554-1 (Version None)
Quarter: 2011Q1

REPORT INFORMATION
  Report Type: 
  Country: None (occurrence: None)
  Receive Date: 20110202
  Receipt Date: 20110120
  Transmission Date: 20110831
  Serious: Yes (Other)
  Sender: FDA-Public Use
  Company Number: 2010-0734

PATIENT
  Age: 11 Year
  Weight: 22.7 kg

DRUGS (1)
  1. INCRELEX [Suspect]
     Indication: GROWTH HORMONE DEFICIENCY
     Dosage: 160 UG/KG (80 UG/KG,2 IN 1 D),SUBCUTANEOUS
     Route: 058
     Dates: start: 20091210, end: 20100101

REACTIONS (1)
  - URTICARIA [None]
